FAERS Safety Report 5615192-6 (Version None)
Quarter: 2008Q1

REPORT INFORMATION
  Report Type: 
  Country: None (occurrence: None)
  Receive Date: 20080206
  Receipt Date: 20080129
  Transmission Date: 20080703
  Serious: Yes (Other)
  Sender: FDA-Public Use
  Company Number: PHHO2007AT20437

PATIENT
  Age: 21 Year
  Sex: Male
  Weight: 63 kg

DRUGS (4)
  1. MYFORTIC VS EVEROLIMUS [Suspect]
     Indication: LUNG TRANSPLANT
     Route: 048
     Dates: start: 20060112, end: 20060412
  2. CERTICAN [Suspect]
     Indication: LUNG TRANSPLANT
     Dosage: 3 MG, BID
     Route: 048
     Dates: start: 20060412, end: 20060818
  3. NEORAL [Concomitant]
     Indication: LUNG TRANSPLANT
     Dosage: 100 MG, TID
     Route: 048
     Dates: start: 20060112
  4. STEROIDS NOS [Concomitant]
     Indication: LUNG TRANSPLANT
     Dosage: 5 MG / DAY
     Route: 048
     Dates: start: 20060111

REACTIONS (1)
  - AGGRESSION [None]
